FAERS Safety Report 9523503 (Version 3)
Quarter: 2013Q4

REPORT INFORMATION
  Report Type: Report from Study
  Country: JP (occurrence: JP)
  Receive Date: 20130913
  Receipt Date: 20131223
  Transmission Date: 20140711
  Serious: Yes (Hospitalization, Other)
  Sender: FDA-Public Use
  Company Number: JP-ASTRAZENECA-2012SE18491

PATIENT
  Age: 63 Year
  Sex: Male

DRUGS (32)
  1. CRESTOR [Suspect]
     Indication: HYPERCHOLESTEROLAEMIA
     Route: 048
     Dates: start: 20111219, end: 20120312
  2. CRESTOR [Suspect]
     Indication: HYPERCHOLESTEROLAEMIA
     Route: 048
     Dates: start: 20120313, end: 20130515
  3. CRESTOR [Suspect]
     Indication: HYPERCHOLESTEROLAEMIA
     Route: 048
     Dates: start: 20130516
  4. GLUCOBAY [Concomitant]
     Indication: DIABETES MELLITUS
     Route: 048
     Dates: start: 20110902
  5. METGLUCO [Concomitant]
     Indication: DIABETES MELLITUS
     Route: 065
     Dates: start: 20120521
  6. GLACTIV [Concomitant]
     Indication: DIABETES MELLITUS
     Route: 065
     Dates: start: 20120703, end: 20121118
  7. GLACTIV [Concomitant]
     Indication: DIABETES MELLITUS
     Route: 065
     Dates: start: 20121119, end: 20130710
  8. ACTOS [Concomitant]
     Indication: DIABETES MELLITUS
     Route: 065
     Dates: start: 20130128
  9. AMARYL [Concomitant]
     Indication: DIABETES MELLITUS
     Route: 048
     Dates: start: 20110919, end: 20120312
  10. AMARYL [Concomitant]
     Indication: DIABETES MELLITUS
     Route: 048
     Dates: start: 20120313, end: 20121118
  11. AMARYL [Concomitant]
     Indication: DIABETES MELLITUS
     Dosage: NUMBER OF SEPARATE DOSAGES UNKNOWN
     Route: 048
     Dates: start: 20121119, end: 20130419
  12. AMARYL [Concomitant]
     Indication: DIABETES MELLITUS
     Dosage: NUMBER OF SEPARATE DOSAGES UNKNOWN
     Route: 048
     Dates: start: 20130420
  13. EQUA [Concomitant]
     Indication: DIABETES MELLITUS
     Route: 065
     Dates: start: 20130711
  14. DIOVAN [Concomitant]
     Indication: HYPERTENSION
     Route: 048
     Dates: start: 20111219, end: 20120312
  15. DIOVAN [Concomitant]
     Indication: HYPERTENSION
     Route: 048
     Dates: start: 20120313, end: 20120813
  16. DIOVAN [Concomitant]
     Indication: HYPERTENSION
     Route: 065
     Dates: start: 20120814, end: 20130419
  17. DIOVAN [Concomitant]
     Indication: HYPERTENSION
     Route: 065
     Dates: start: 20130516, end: 20130626
  18. DIOVAN [Concomitant]
     Indication: HYPERTENSION
     Route: 065
     Dates: start: 20130627
  19. AMLODIN OD [Concomitant]
     Indication: HYPERTENSION
     Route: 065
     Dates: start: 20120522, end: 20120702
  20. AMLODIN OD [Concomitant]
     Indication: HYPERTENSION
     Route: 065
     Dates: start: 20120703, end: 20120930
  21. AMLODIN OD [Concomitant]
     Indication: HYPERTENSION
     Route: 048
     Dates: start: 20121001, end: 20130419
  22. BUTERAZINE [Concomitant]
     Indication: HYPERTENSION
     Route: 065
     Dates: start: 20130420, end: 20130515
  23. AMLODIPINE OD [Concomitant]
     Indication: HYPERTENSION
     Route: 065
     Dates: start: 20130424
  24. INDOMETACIN [Concomitant]
     Route: 065
     Dates: start: 20120624, end: 20120724
  25. CALONAL [Concomitant]
     Route: 048
     Dates: start: 20130419
  26. METHYCOBAL [Concomitant]
     Route: 048
     Dates: start: 20130422
  27. TRUSOPT [Concomitant]
     Route: 047
     Dates: start: 20130424, end: 20130509
  28. MIKELAN LA [Concomitant]
     Route: 047
     Dates: start: 20130424, end: 20130509
  29. LUMIGAN [Concomitant]
     Route: 047
     Dates: start: 20130424
  30. COSOPT [Concomitant]
     Dosage: NUMBER OF SEPARATE DOSAGES UNKNOWN
     Route: 047
     Dates: start: 20130510
  31. REBAMIPIDE [Concomitant]
     Route: 048
     Dates: start: 20130603
  32. BAYASPIRIN [Concomitant]
     Route: 048
     Dates: start: 20130603

REACTIONS (7)
  - Angina pectoris [Unknown]
  - Cataract [Recovered/Resolved]
  - Alanine aminotransferase increased [Recovered/Resolved]
  - Aspartate aminotransferase increased [Recovered/Resolved]
  - Hepatic steatosis [Unknown]
  - Ligament sprain [Recovered/Resolved]
  - Hypertension [Recovered/Resolved]
